FAERS Safety Report 22678248 (Version 4)
Quarter: 2023Q4

REPORT INFORMATION
  Report Type: Other
  Country: US (occurrence: None)
  Receive Date: 20230706
  Receipt Date: 20231016
  Transmission Date: 20240109
  Serious: Yes (Hospitalization, Other)
  Sender: FDA-Public Use
  Company Number: US-ROCHE-3377316

PATIENT
  Age: 67 Year
  Sex: Male
  Weight: 54.48 kg

DRUGS (8)
  1. OCREVUS [Suspect]
     Active Substance: OCRELIZUMAB
     Indication: Primary progressive multiple sclerosis
     Dosage: THEN 600 MG EVERY 6 MONTHS?MOST RECENT DOSE WAS ON /OCT/2022 (LAST INFUSION DATE IS 20/OCT/2022)
     Route: 042
     Dates: start: 20211005, end: 20221020
  2. TIZANIDINE [Suspect]
     Active Substance: TIZANIDINE
     Indication: Product used for unknown indication
     Route: 065
  3. COPAXONE [Concomitant]
     Active Substance: GLATIRAMER ACETATE
     Indication: Progressive relapsing multiple sclerosis
  4. CEFAZOLIN [Concomitant]
     Active Substance: CEFAZOLIN
     Route: 042
     Dates: start: 20230712, end: 20230823
  5. FLAGYL [Concomitant]
     Active Substance: METRONIDAZOLE\METRONIDAZOLE HYDROCHLORIDE
     Dates: start: 20230712, end: 20230823
  6. CEFEPIME [Concomitant]
     Active Substance: CEFEPIME HYDROCHLORIDE
  7. VANCOMYCIN [Concomitant]
     Active Substance: VANCOMYCIN
  8. TIZANIDINE [Concomitant]
     Active Substance: TIZANIDINE
     Dates: start: 202302

REACTIONS (9)
  - Staphylococcal infection [Recovered/Resolved]
  - Ulcer [Recovered/Resolved]
  - Abscess [Recovered/Resolved]
  - Streptococcus test positive [Recovered/Resolved]
  - Prostate cancer [Unknown]
  - Pneumonia [Recovered/Resolved]
  - Cellulitis [Recovered/Resolved]
  - COVID-19 [Unknown]
  - Drug hypersensitivity [Unknown]

NARRATIVE: CASE EVENT DATE: 20230101
